FAERS Safety Report 18159747 (Version 2)
Quarter: 2020Q3

REPORT INFORMATION
  Report Type: Spontaneous
  Country: RU (occurrence: RU)
  Receive Date: 20200817
  Receipt Date: 20200916
  Transmission Date: 20201103
  Serious: Yes (Other)
  Sender: FDA-Public Use
  Company Number: RU-SA-2020SA187671

PATIENT

DRUGS (8)
  1. NOVORAPID [Concomitant]
     Active Substance: INSULIN ASPART
     Indication: TYPE 2 DIABETES MELLITUS
     Dosage: 8 IU + 12 IU + 8 IU PER DAY
     Route: 058
     Dates: start: 2018, end: 2019
  2. NOVORAPID [Concomitant]
     Active Substance: INSULIN ASPART
     Dosage: 6 IU + 10 IU + 6 IU PER DAY
     Route: 058
     Dates: start: 2019
  3. TOUJEO [Suspect]
     Active Substance: INSULIN GLARGINE
     Indication: TYPE 2 DIABETES MELLITUS
     Dosage: 8 IU, QD
     Route: 058
     Dates: start: 2019
  4. TOUJEO [Suspect]
     Active Substance: INSULIN GLARGINE
     Dosage: 8 IU, QD
     Route: 058
  5. PREDNISOLONE. [Concomitant]
     Active Substance: PREDNISOLONE
     Indication: BRAIN NEOPLASM
     Dosage: 3 TABLETS/ MORNING + 2 TABLETS PER DAY
     Route: 048
  6. TOUJEO [Suspect]
     Active Substance: INSULIN GLARGINE
     Dosage: 8 IU, BID
     Route: 065
     Dates: start: 20200719, end: 20200719
  7. LANTUS SOLOSTAR [Concomitant]
     Active Substance: INSULIN GLARGINE
     Indication: TYPE 2 DIABETES MELLITUS
     Dosage: 8 IU, QD
     Route: 058
     Dates: start: 2018, end: 2019
  8. PREDNISOLONE. [Concomitant]
     Active Substance: PREDNISOLONE
     Indication: SPINAL CORD NEOPLASM

REACTIONS (3)
  - Inappropriate schedule of product administration [Unknown]
  - Brain compression [Not Recovered/Not Resolved]
  - Muscle tightness [Not Recovered/Not Resolved]

NARRATIVE: CASE EVENT DATE: 20200719
